FAERS Safety Report 23542804 (Version 1)
Quarter: 2024Q1

REPORT INFORMATION
  Report Type: Report from Study
  Country: JP (occurrence: JP)
  Receive Date: 20240220
  Receipt Date: 20240220
  Transmission Date: 20240409
  Serious: Yes (Other)
  Sender: FDA-Public Use
  Company Number: JP-TAKEDA-2024TJP002473

PATIENT
  Sex: Male
  Weight: 72.9 kg

DRUGS (12)
  1. LEUPROLIDE ACETATE [Suspect]
     Active Substance: ISOPROPYL ALCOHOL\LEUPROLIDE ACETATE
     Indication: Bulbospinal muscular atrophy congenital
     Dosage: 11.25 MILLIGRAM, Q3MONTHS
     Route: 058
     Dates: start: 20200124
  2. VIDARABINE [Concomitant]
     Active Substance: VIDARABINE
     Indication: Back pain
     Dosage: UNK
     Route: 065
     Dates: start: 20210928, end: 20210929
  3. AROTINOLOL HYDROCHLORIDE [Concomitant]
     Active Substance: AROTINOLOL HYDROCHLORIDE
     Indication: Bulbospinal muscular atrophy congenital
     Dosage: 10 MILLIGRAM
     Route: 065
  4. INSULIN GLARGINE [Concomitant]
     Active Substance: INSULIN GLARGINE
     Indication: Product used for unknown indication
     Dosage: 450 INTERNATIONAL UNIT
     Route: 065
     Dates: start: 20201208
  5. BEZAFIBRATE [Concomitant]
     Active Substance: BEZAFIBRATE
     Indication: Hyperlipidaemia
     Dosage: 400 MILLIGRAM
     Route: 065
     Dates: end: 20200301
  6. FELBINAC [Concomitant]
     Active Substance: FELBINAC
     Indication: Bulbospinal muscular atrophy congenital
     Dosage: 40 GRAM
     Route: 065
     Dates: start: 20200906, end: 20201202
  7. LOXOPROFEN SODIUM [Concomitant]
     Active Substance: LOXOPROFEN SODIUM
     Indication: Bulbospinal muscular atrophy congenital
     Dosage: 100 MILLIGRAM
     Route: 065
     Dates: start: 20200722
  8. TENELIGLIPTIN [Concomitant]
     Active Substance: TENELIGLIPTIN
     Indication: Product used for unknown indication
     Dosage: 20 MILLIGRAM
     Route: 065
  9. INSULIN GLARGINE [Concomitant]
     Active Substance: INSULIN GLARGINE
     Indication: Product used for unknown indication
     Dosage: 300 INTERNATIONAL UNIT
     Route: 065
     Dates: start: 20210615, end: 20210705
  10. LOPERAMIDE HYDROCHLORIDE [Concomitant]
     Active Substance: LOPERAMIDE HYDROCHLORIDE
     Indication: Enterocolitis
     Dosage: 1 MILLIGRAM
     Route: 065
     Dates: start: 20200908, end: 20201025
  11. MIYA-BM [Concomitant]
     Active Substance: CLOSTRIDIUM BUTYRICUM SPORES STRAIN M-55
     Indication: Enterocolitis
     Dosage: 1 DOSAGE FORM
     Route: 065
     Dates: start: 20200824
  12. METGLUCO [Concomitant]
     Active Substance: METFORMIN HYDROCHLORIDE
     Indication: Product used for unknown indication
     Dosage: 1500 MILLIGRAM
     Route: 065

REACTIONS (1)
  - Diabetes mellitus [Unknown]
